FAERS Safety Report 6348704-8 (Version None)
Quarter: 2009Q3

REPORT INFORMATION
  Report Type: 
  Country: None (occurrence: None)
  Receive Date: 20090911
  Receipt Date: 20090903
  Transmission Date: 20100115
  Serious: No
  Sender: FDA-Public Use
  Company Number: PHHY2009AU23793

PATIENT
  Sex: Female

DRUGS (3)
  1. TASIGNA [Suspect]
     Indication: CHRONIC MYELOID LEUKAEMIA
     Dosage: 400 MG/DAY
     Route: 048
     Dates: start: 20090501
  2. TASIGNA [Suspect]
     Dosage: 600 MG/DAY
     Route: 048
  3. WARFARIN SODIUM [Concomitant]

REACTIONS (2)
  - SKIN DISORDER [None]
  - URTICARIA [None]
